FAERS Safety Report 4379657-X (Version None)
Quarter: 2004Q2

REPORT INFORMATION
  Report Type: 
  Country: None (occurrence: None)
  Receive Date: 20040617
  Receipt Date: 20040606
  Transmission Date: 20050107
  Serious: Yes (Hospitalization, Other)
  Sender: FDA-Public Use
  Company Number: PHBS2004DO07414

PATIENT
  Sex: Female

DRUGS (2)
  1. ZELMAC [Suspect]
     Dosage: 6 MG, UNK
     Route: 048
     Dates: start: 20040606
  2. TRAMACET [Suspect]
     Dosage: 10 DF, ONCE/SINGLE
     Route: 048
     Dates: start: 20040606

REACTIONS (1)
  - INTENTIONAL OVERDOSE [None]
